FAERS Safety Report 8884955 (Version 4)
Quarter: 2014Q1

REPORT INFORMATION
  Report Type: Spontaneous
  Country: CN (occurrence: CN)
  Receive Date: 20121102
  Receipt Date: 20140130
  Transmission Date: 20141002
  Serious: Yes (Other)
  Sender: FDA-Public Use
  Company Number: CN-JNJFOC-20121015828

PATIENT
  Age: 26 Year
  Sex: Male
  Weight: 62 kg

DRUGS (4)
  1. REMICADE [Suspect]
     Indication: CROHN^S DISEASE
     Route: 042
     Dates: start: 201204
  2. REMICADE [Suspect]
     Indication: CROHN^S DISEASE
     Route: 042
     Dates: start: 20120420, end: 20120807
  3. REMICADE [Suspect]
     Indication: CROHN^S DISEASE
     Route: 042
     Dates: start: 20120807, end: 20120807
  4. REMICADE [Suspect]
     Indication: CROHN^S DISEASE
     Dosage: STRENGTH: 100 MG
     Route: 042
     Dates: start: 201203

REACTIONS (1)
  - Tuberculosis [Recovered/Resolved]
